FAERS Safety Report 7979141-8 (Version None)
Quarter: 2011Q4

REPORT INFORMATION
  Report Type: 
  Country: None (occurrence: None)
  Receive Date: 20111130
  Receipt Date: 20111115
  Transmission Date: 20120403
  Serious: Yes (Death, Hospitalization, Disabling)
  Sender: FDA-Public Use
  Company Number: 2009AL000843

PATIENT
  Age: 56 Year
  Sex: Male
  Weight: 136.0791 kg

DRUGS (74)
  1. DIGOXIN [Suspect]
     Indication: ATRIAL FIBRILLATION
     Dosage: 0.25 MG;QD;PO
     Route: 048
     Dates: start: 20041230, end: 20080128
  2. ALLOPURINOL [Concomitant]
  3. CIPROFLOXACIN [Concomitant]
  4. FENTANYL [Concomitant]
  5. DITROPAN XL [Concomitant]
  6. LASIX [Concomitant]
  7. ZOCOR [Concomitant]
  8. STAGESIC [Concomitant]
  9. CYCLOBENZAPRINE [Concomitant]
  10. ASPIRIN [Concomitant]
  11. CORDARONE [Concomitant]
  12. GLIPIZIDE [Concomitant]
  13. DUONEB [Concomitant]
  14. EPOGEN [Concomitant]
  15. PACERONE [Concomitant]
  16. SULFAMETHOXAZOLE AND TRIMETHOPRIM [Concomitant]
  17. KETOCONAZOLE [Concomitant]
  18. METOLAZONE [Concomitant]
  19. FOSINOPRIL SODIUM [Concomitant]
  20. LIPITOR [Concomitant]
  21. NYSTATIN [Concomitant]
  22. CARISOPRODOL [Concomitant]
  23. ALBUTEROL [Concomitant]
  24. TRAMADOL HCL [Concomitant]
  25. LOVASTATIN [Concomitant]
  26. MAGNESIUM HYDROXIDE TAB [Concomitant]
  27. MIDAZOLAM [Concomitant]
  28. ACCUPRIL [Concomitant]
  29. HYDROCODONE [Concomitant]
  30. POTASSIUM CHLORIDE [Concomitant]
  31. NOVOLIN-N INSULIN [Concomitant]
  32. SPIRIVA [Concomitant]
  33. VIOXX [Concomitant]
  34. AMITRYPTYLIN [Concomitant]
  35. COREG [Concomitant]
  36. TUSDEC-DM [Concomitant]
  37. MAG-OX [Concomitant]
  38. VANCOMYCIN HYCHLORIDE [Concomitant]
  39. PLAVIX [Concomitant]
  40. SIMVASTATIN [Concomitant]
  41. CARVEDILOL [Concomitant]
  42. CLOPIDOGREL [Concomitant]
  43. MONOPRIL [Concomitant]
  44. BUMEX [Concomitant]
  45. NOVOLIN 70/30 [Concomitant]
  46. LORTAB [Concomitant]
  47. BEXTRA [Concomitant]
  48. COMBIVENT [Concomitant]
  49. METOCLOPRAM [Concomitant]
  50. MORPHINE [Concomitant]
  51. PROMETHAZINE [Concomitant]
  52. ZAROXOLYN [Concomitant]
  53. RELION [Concomitant]
  54. ALTACE [Concomitant]
  55. SILVER SULFADIAZINE [Concomitant]
  56. AUGMENTIN [Concomitant]
  57. CEPHALEXIN [Concomitant]
  58. SPIRONOLACTONE [Concomitant]
  59. SODIUM CHLORIDE [Concomitant]
  60. CELEBREX [Concomitant]
  61. ACETAMINOPHEN [Concomitant]
  62. LOVASTATIN [Concomitant]
  63. NOVOLIN R [Concomitant]
  64. PROTONIX [Concomitant]
  65. FUROSEMIDE [Concomitant]
  66. NITROGLYCERIN [Concomitant]
  67. DALTEPARIN SODIUM [Concomitant]
  68. ALBUMIN (HUMAN) [Concomitant]
  69. DIAMOX SRC [Concomitant]
  70. IRON DEXTRAN [Concomitant]
  71. LOVENOX [Concomitant]
  72. NASONEX [Concomitant]
  73. NPH INSULIN [Concomitant]
  74. TRAMADOL HCL [Concomitant]

REACTIONS (61)
  - ARTHRALGIA [None]
  - IMPETIGO [None]
  - RENAL FAILURE CHRONIC [None]
  - GASTROOESOPHAGEAL REFLUX DISEASE [None]
  - IMPAIRED HEALING [None]
  - DYSPEPSIA [None]
  - SUPRAVENTRICULAR TACHYCARDIA [None]
  - ACTIVITIES OF DAILY LIVING IMPAIRED [None]
  - PULMONARY OEDEMA [None]
  - OSTEOARTHRITIS [None]
  - PAIN [None]
  - ANXIETY [None]
  - BRONCHITIS [None]
  - SLEEP APNOEA SYNDROME [None]
  - HAEMORRHOIDS [None]
  - CHRONIC OBSTRUCTIVE PULMONARY DISEASE [None]
  - NECROSIS [None]
  - FOOT AMPUTATION [None]
  - RENAL FAILURE ACUTE [None]
  - LEG AMPUTATION [None]
  - MENTAL STATUS CHANGES [None]
  - MUSCULOSKELETAL CHEST PAIN [None]
  - GANGRENE [None]
  - WOUND INFECTION [None]
  - AORTIC VALVE INCOMPETENCE [None]
  - HYPERURICAEMIA [None]
  - PERIPHERAL VASCULAR DISORDER [None]
  - PICKWICKIAN SYNDROME [None]
  - COR PULMONALE [None]
  - MYOCARDIAL ISCHAEMIA [None]
  - ANAEMIA [None]
  - DRUG HYPERSENSITIVITY [None]
  - EXCORIATION [None]
  - INSOMNIA [None]
  - SINUS BRADYCARDIA [None]
  - HYPERTENSION [None]
  - CYSTITIS [None]
  - PULMONARY CONGESTION [None]
  - HYPERLIPIDAEMIA [None]
  - ECONOMIC PROBLEM [None]
  - ARTERIOSCLEROSIS [None]
  - CARDIAC FAILURE CONGESTIVE [None]
  - AORTIC VALVE DISEASE [None]
  - ARTERIOSCLEROSIS CORONARY ARTERY [None]
  - CAROTID ARTERY STENOSIS [None]
  - AORTIC STENOSIS [None]
  - ABSCESS LIMB [None]
  - TYPE 2 DIABETES MELLITUS [None]
  - FALL [None]
  - CELLULITIS [None]
  - MALNUTRITION [None]
  - ANGINA PECTORIS [None]
  - DIABETIC NEUROPATHY [None]
  - TREATMENT NONCOMPLIANCE [None]
  - MULTIPLE INJURIES [None]
  - SKIN ULCER [None]
  - CARDIOMYOPATHY [None]
  - ATRIAL FIBRILLATION [None]
  - PULMONARY HYPERTENSION [None]
  - ARRHYTHMIA [None]
  - DEPRESSION [None]
